FAERS Safety Report 5096500-4 (Version None)
Quarter: 2006Q3

REPORT INFORMATION
  Report Type: 
  Country: None (occurrence: None)
  Receive Date: 20060830
  Receipt Date: 20060731
  Transmission Date: 20061208
  Serious: Yes (Life-Threatening, Hospitalization)
  Sender: FDA-Public Use
  Company Number: A-CH2006-12938

PATIENT
  Age: 60 Year
  Sex: Female
  Weight: 77 kg

DRUGS (14)
  1. TRACLEER [Suspect]
     Indication: PULMONARY HYPERTENSION
     Dosage: SEE IMAGE
     Route: 048
     Dates: end: 20060602
  2. TRACLEER [Suspect]
     Indication: PULMONARY HYPERTENSION
     Dosage: SEE IMAGE
     Route: 048
     Dates: start: 20050210
  3. MARCUMAR [Concomitant]
  4. LASILACTONE (SPIRONOLACTONE, FUROSEMIDE) [Concomitant]
  5. LASIX (FORUSEMIDE) [Concomitant]
  6. MOLSIDOLATE (MOLSIDOMINE) [Concomitant]
  7. PANTOPRAZOLE SODIUM [Concomitant]
  8. DILATREND (CARVEDIOL) [Concomitant]
  9. COZAAR PLUS (LOSARTAN POTASSIUM, HYDROCHLOROTHIAZIDE) [Concomitant]
  10. DIGITOXIN TAB [Concomitant]
  11. PRAVACHOL [Concomitant]
  12. GLUCOPHAGE [Concomitant]
  13. FEMARA [Concomitant]
  14. OXYGEN (OXYGEN) [Concomitant]

REACTIONS (22)
  - ANAEMIA [None]
  - COLONIC POLYP [None]
  - CYTOMEGALOVIRUS TEST POSITIVE [None]
  - DIABETIC NEPHROPATHY [None]
  - DIZZINESS [None]
  - DRUG INTERACTION [None]
  - ENTEROBACTER INFECTION [None]
  - ESCHERICHIA URINARY TRACT INFECTION [None]
  - GASTRITIS [None]
  - GASTROINTESTINAL DISORDER [None]
  - HEPATIC STEATOSIS [None]
  - HEPATITIS CHOLESTATIC [None]
  - HYPOTENSION [None]
  - JAUNDICE CHOLESTATIC [None]
  - LARGE INTESTINAL HAEMORRHAGE [None]
  - METAPLASIA [None]
  - PATHOGEN RESISTANCE [None]
  - POST PROCEDURAL HAEMORRHAGE [None]
  - RENAL FAILURE ACUTE [None]
  - RIGHT VENTRICULAR FAILURE [None]
  - URINARY TRACT INFECTION [None]
  - WEIGHT DECREASED [None]
